FAERS Safety Report 4351580-6 (Version None)
Quarter: 2004Q2

REPORT INFORMATION
  Report Type: 
  Country: None (occurrence: None)
  Receive Date: 20040429
  Receipt Date: 20040402
  Transmission Date: 20050107
  Serious: No
  Sender: FDA-Public Use
  Company Number: 2004-114517-NL

PATIENT
  Age: 44 Year
  Sex: Female
  Weight: 52.1 kg

DRUGS (2)
  1. NUVARING [Suspect]
     Indication: MENOPAUSAL SYMPTOMS
     Dosage: DF DAILY VAGINAL
     Route: 067
     Dates: start: 20040324
  2. NUVARING [Suspect]
     Indication: METRORRHAGIA
     Dosage: DF DAILY VAGINAL
     Route: 067
     Dates: start: 20040324

REACTIONS (3)
  - GENITAL PRURITUS FEMALE [None]
  - MEDICAL DEVICE COMPLICATION [None]
  - MEDICAL DEVICE DISCOMFORT [None]
